FAERS Safety Report 11977181 (Version 1)
Quarter: 2016Q1

REPORT INFORMATION
  Report Type: Spontaneous
  Country: US (occurrence: None)
  Receive Date: 20160128
  Receipt Date: 20160128
  Transmission Date: 20160526
  Serious: No
  Sender: FDA-Public Use
  Company Number: None

PATIENT
  Age: 68 Year
  Sex: Female
  Weight: 58.06 kg

DRUGS (6)
  1. VITAMIN B12 [Concomitant]
     Active Substance: CYANOCOBALAMIN
  2. METHOTREXATE [Concomitant]
     Active Substance: METHOTREXATE
  3. CALTRATE [Concomitant]
     Active Substance: CALCIUM CARBONATE
  4. MUCINEX [Concomitant]
     Active Substance: GUAIFENESIN
  5. FOLIC ACID. [Concomitant]
     Active Substance: FOLIC ACID
  6. CIPROFLOXACIN 500MG TABLETS COBALT [Suspect]
     Active Substance: CIPROFLOXACIN
     Indication: URINARY TRACT INFECTION
     Route: 048
     Dates: start: 20160104, end: 20160107

REACTIONS (4)
  - Tendon pain [None]
  - Paraesthesia [None]
  - Inflammation [None]
  - Nervous system disorder [None]

NARRATIVE: CASE EVENT DATE: 20160107
